FAERS Safety Report 24302550 (Version 2)
Quarter: 2024Q3

REPORT INFORMATION
  Report Type: Spontaneous
  Country: SE (occurrence: SE)
  Receive Date: 20240910
  Receipt Date: 20240923
  Transmission Date: 20241016
  Serious: Yes (Other)
  Sender: HILL DERM
  Company Number: SE-Hill Dermaceuticals, Inc.-2161400

PATIENT
  Age: 67 Year
  Sex: Male

DRUGS (4)
  1. FLUOROURACIL [Suspect]
     Active Substance: FLUOROURACIL
     Indication: Product used for unknown indication
     Dates: start: 20240625
  2. Folsyra (folsyra, vattenfri) [Concomitant]
     Dates: start: 20240625
  3. VECTIBIX [Concomitant]
     Active Substance: PANITUMUMAB
     Dates: start: 20240625
  4. IRINOTECAN HYDROCHLORIDE [Concomitant]
     Active Substance: IRINOTECAN HYDROCHLORIDE
     Dates: start: 20240625

REACTIONS (1)
  - Stomatitis [Recovering/Resolving]

NARRATIVE: CASE EVENT DATE: 20240702
